FAERS Safety Report 6736645-3 (Version None)
Quarter: 2010Q2

REPORT INFORMATION
  Report Type: 
  Country: None (occurrence: None)
  Receive Date: 20100521
  Receipt Date: 20100511
  Transmission Date: 20101027
  Serious: Yes (Other)
  Sender: FDA-Public Use
  Company Number: US-ELI_LILLY_AND_COMPANY-US201005003276

PATIENT
  Sex: Female

DRUGS (5)
  1. FORTEO [Suspect]
     Indication: OSTEOPOROSIS
     Dosage: 20 UG, DAILY (1/D)
     Dates: start: 20090601
  2. EVISTA [Suspect]
     Indication: OSTEOPOROSIS
     Dosage: 60 MG, DAILY (1/D)
  3. CALTRATE [Concomitant]
  4. FELODIPINE [Concomitant]
     Indication: BLOOD PRESSURE
     Dosage: 5 MG, 2/D
  5. LISINOPRIL [Concomitant]
     Dosage: 25 MG, DAILY (1/D)

REACTIONS (4)
  - FALL [None]
  - HIP FRACTURE [None]
  - LIGAMENT RUPTURE [None]
  - UPPER LIMB FRACTURE [None]
